FAERS Safety Report 6354689-0 (Version None)
Quarter: 2009Q3

REPORT INFORMATION
  Report Type: 
  Country: None (occurrence: None)
  Receive Date: 20090914
  Receipt Date: 20090901
  Transmission Date: 20100115
  Serious: Yes (Death, Other)
  Sender: FDA-Public Use
  Company Number: US-BAXTER-2009BH009565

PATIENT
  Age: 17 Year
  Sex: Female
  Weight: 2 kg

DRUGS (3)
  1. LACTATED RINGER'S [Suspect]
     Indication: RENAL IMPAIRMENT
     Route: 065
     Dates: start: 20090501, end: 20090501
  2. LACTATED RINGER'S [Suspect]
     Indication: OFF LABEL USE
     Route: 065
     Dates: start: 20090501, end: 20090501
  3. AMLODIPINE [Concomitant]
     Indication: HYPERTENSION
     Route: 048
     Dates: start: 20090501, end: 20090501

REACTIONS (3)
  - DEATH [None]
  - MEDICAL DEVICE COMPLICATION [None]
  - OVERDOSE [None]
